FAERS Safety Report 6242111-4 (Version None)
Quarter: 2009Q2

REPORT INFORMATION
  Report Type: 
  Country: None (occurrence: None)
  Receive Date: 20090624
  Receipt Date: 20080521
  Transmission Date: 20091009
  Serious: Yes (Other)
  Sender: FDA-Public Use
  Company Number: US-ASTRAZENECA-2007UW03774

PATIENT
  Age: 507 Month
  Sex: Female
  Weight: 85.3 kg

DRUGS (25)
  1. SEROQUEL [Suspect]
     Indication: BIPOLAR DISORDER
     Dosage: STRENGTH 25-100 MG
     Route: 048
     Dates: start: 19971128
  2. SEROQUEL [Suspect]
     Indication: DEPRESSION
     Dosage: STRENGTH 25-100 MG
     Route: 048
     Dates: start: 19971128
  3. SEROQUEL [Suspect]
     Indication: SCHIZOPHRENIA
     Dosage: STRENGTH 25-100 MG
     Route: 048
     Dates: start: 19971128
  4. SEROQUEL [Suspect]
     Route: 048
     Dates: start: 20020701, end: 20060301
  5. SEROQUEL [Suspect]
     Route: 048
     Dates: start: 20020701, end: 20060301
  6. SEROQUEL [Suspect]
     Route: 048
     Dates: start: 20020701, end: 20060301
  7. ACETAMINOPHEN [Concomitant]
     Indication: PYREXIA
     Dosage: 325 MG 1 OR 2 Q.4.H.  P.R.N. NOT TO EXCEED 2 DOSES PER DAY
     Route: 048
     Dates: start: 20040630
  8. ACETAMINOPHEN [Concomitant]
     Indication: PAIN
     Dosage: 325 MG 1 OR 2 Q.4.H.  P.R.N. NOT TO EXCEED 2 DOSES PER DAY
     Route: 048
     Dates: start: 20040630
  9. PHENEGRAN [Concomitant]
     Indication: NAUSEA
     Dosage: EVERY 4-6 HOURS P.R.N.
     Route: 030
     Dates: start: 19971128
  10. PHENEGRAN [Concomitant]
     Route: 048
     Dates: start: 20040630
  11. AMARYL [Concomitant]
     Route: 048
     Dates: start: 20040630
  12. NEURONTIN [Concomitant]
     Route: 048
     Dates: start: 20040630
  13. XANAX [Concomitant]
     Dosage: STRENGTH 0.25-1 MG
     Route: 048
     Dates: start: 20030312
  14. AMBIEN [Concomitant]
     Route: 048
     Dates: start: 20040630
  15. SOMA [Concomitant]
     Route: 048
     Dates: start: 20040630
  16. HYOSCYAMINE [Concomitant]
     Route: 048
     Dates: start: 20040630
  17. REGLAN [Concomitant]
     Dosage: STRENGTH 10-40 MG
     Route: 048
     Dates: start: 19971128
  18. SYNTHROID [Concomitant]
     Dosage: 200-400 MCG
     Route: 048
     Dates: start: 19940902
  19. ENDOCET [Concomitant]
     Dosage: 10/325 MG T.I.D
     Route: 048
     Dates: start: 20040630
  20. LEXAPRO [Concomitant]
     Route: 048
     Dates: start: 20040630
  21. DOXEPIN HCL [Concomitant]
     Route: 048
     Dates: start: 20030312
  22. RISPERDAL [Concomitant]
     Route: 048
     Dates: start: 20030312
  23. AVANDIA [Concomitant]
     Route: 048
     Dates: start: 20030312
  24. DEPAKOTE [Concomitant]
     Route: 048
     Dates: start: 20030312
  25. DEMEROL [Concomitant]
     Dosage: AS PER NEEDED
     Route: 048

REACTIONS (6)
  - DIABETES MELLITUS [None]
  - DIABETES MELLITUS INADEQUATE CONTROL [None]
  - DIABETIC NEUROPATHY [None]
  - GLYCOSURIA [None]
  - NEUROPATHY PERIPHERAL [None]
  - TYPE 2 DIABETES MELLITUS [None]
